FAERS Safety Report 9095896 (Version 3)
Quarter: 2013Q2

REPORT INFORMATION
  Report Type: Spontaneous
  Country: DE (occurrence: DE)
  Receive Date: 20130220
  Receipt Date: 20130506
  Transmission Date: 20140414
  Serious: Yes (Other)
  Sender: FDA-Public Use
  Company Number: DE-ELI_LILLY_AND_COMPANY-DE201302003045

PATIENT
  Age: 68 Year
  Sex: Female

DRUGS (3)
  1. FORSTEO [Suspect]
     Indication: OSTEOPOROSIS
     Dosage: UNK, QD
     Route: 058
     Dates: start: 20130128, end: 20130206
  2. FORSTEO [Suspect]
     Dosage: UNK, EVERY 2 DAYS
     Dates: end: 20130303
  3. VITAMIN D [Concomitant]
     Dosage: UNK, UNKNOWN
     Route: 065

REACTIONS (21)
  - Ulcerative keratitis [Recovering/Resolving]
  - Blood pressure increased [Not Recovered/Not Resolved]
  - Tachycardia [Recovering/Resolving]
  - Paraesthesia oral [Not Recovered/Not Resolved]
  - Swollen tongue [Recovering/Resolving]
  - Glossodynia [Recovering/Resolving]
  - Tooth disorder [Unknown]
  - Ear pain [Recovering/Resolving]
  - Nausea [Recovering/Resolving]
  - Abdominal distension [Recovering/Resolving]
  - Cardiac disorder [Recovering/Resolving]
  - Limb discomfort [Recovering/Resolving]
  - Hot flush [Recovering/Resolving]
  - Dizziness [Recovering/Resolving]
  - Incorrect drug administration duration [Recovered/Resolved]
  - Cardiovascular disorder [Not Recovered/Not Resolved]
  - Eye pruritus [Not Recovered/Not Resolved]
  - Dyspnoea [Not Recovered/Not Resolved]
  - Asthma [Not Recovered/Not Resolved]
  - Swelling [Not Recovered/Not Resolved]
  - Hypersensitivity [Recovering/Resolving]
